FAERS Safety Report 9759364 (Version 1)
Quarter: 2013Q4

REPORT INFORMATION
  Report Type: Spontaneous
  Country: US (occurrence: None)
  Receive Date: 20131216
  Receipt Date: 20131216
  Transmission Date: 20140711
  Serious: Yes (Hospitalization, Other)
  Sender: FDA-Public Use
  Company Number: 163-21880-12041498(0)

PATIENT
  Age: 64 Year
  Sex: Male

DRUGS (1)
  1. REVLIMID (LENALIDOMIDE) (25 MILLIGRAM, CAPSULES) [Suspect]
     Indication: PLASMA CELL MYELOMA
     Dosage: 25 MG DAYS 1-14 , 7 DAYS OFF, PO?10 MG, DAYS FOR 14 DAYS PO? ?

REACTIONS (3)
  - Dehydration [None]
  - Fatigue [None]
  - Diarrhoea [None]
